FAERS Safety Report 5693554-9 (Version None)
Quarter: 2008Q2

REPORT INFORMATION
  Report Type: 
  Country: None (occurrence: None)
  Receive Date: 20080402
  Receipt Date: 20080402
  Transmission Date: 20081010
  Serious: Yes (Hospitalization)
  Sender: FDA-Public Use
  Company Number: None

PATIENT
  Age: 16 Year
  Sex: Female
  Weight: 44.8 kg

DRUGS (1)
  1. ISOSORBIDE DINITRATE [Suspect]

REACTIONS (1)
  - SELF-MEDICATION [None]
